FAERS Safety Report 6267325-9 (Version None)
Quarter: 2009Q3

REPORT INFORMATION
  Report Type: 
  Country: None (occurrence: None)
  Receive Date: 20090714
  Receipt Date: 20090706
  Transmission Date: 20100115
  Serious: Yes (Hospitalization, Congenital Anomaly)
  Sender: FDA-Public Use
  Company Number: A0681272A

PATIENT
  Sex: Male
  Weight: 2.9 kg

DRUGS (4)
  1. PAXIL [Suspect]
     Dosage: 20MG PER DAY
     Dates: start: 19990101, end: 20010101
  2. ZOLOFT [Concomitant]
     Dates: start: 19990101, end: 20010101
  3. VITAMIN TAB [Concomitant]
  4. MACROBID [Concomitant]

REACTIONS (5)
  - ATRIAL SEPTAL DEFECT [None]
  - DIGEORGE'S SYNDROME [None]
  - DRUG EXPOSURE DURING PREGNANCY [None]
  - MULTIPLE CONGENITAL ABNORMALITIES [None]
  - VENTRICULAR SEPTAL DEFECT [None]
